FAERS Safety Report 9611091 (Version 1)
Quarter: 2013Q4

REPORT INFORMATION
  Report Type: Spontaneous
  Country: US (occurrence: US)
  Receive Date: 20131009
  Receipt Date: 20131009
  Transmission Date: 20140711
  Serious: No
  Sender: FDA-Public Use
  Company Number: US-SAVIENT-2013S1000091

PATIENT
  Sex: Male

DRUGS (2)
  1. KRYSTEXXA [Suspect]
     Indication: GOUT
     Route: 042
  2. SOLU-MEDROL [Concomitant]
     Indication: ALLERGY PROPHYLAXIS

REACTIONS (2)
  - Palpitations [Unknown]
  - Vision blurred [Not Recovered/Not Resolved]
